FAERS Safety Report 9950548 (Version 2)
Quarter: 2014Q1

REPORT INFORMATION
  Report Type: Report from Study
  Country: US (occurrence: US)
  Receive Date: 20140304
  Receipt Date: 20140304
  Transmission Date: 20141002
  Serious: Yes (Other)
  Sender: FDA-Public Use
  Company Number: US-ABBVIE-13P-163-1044561-00

PATIENT
  Age: 16 Year
  Sex: Female
  Weight: 77.18 kg

DRUGS (5)
  1. HUMIRA PEN [Suspect]
     Indication: JUVENILE IDIOPATHIC ARTHRITIS
     Dates: start: 200908
  2. UNKNOWN EYE DROPS [Suspect]
     Indication: PRODUCT USED FOR UNKNOWN INDICATION
  3. NAPROSYN [Concomitant]
     Indication: PRODUCT USED FOR UNKNOWN INDICATION
  4. MYCOPHENOLATE MOFETIL [Concomitant]
     Indication: UVEITIS
  5. UNKNOWN EYE DROPS [Concomitant]
     Indication: INFLAMMATION

REACTIONS (6)
  - Cataract [Unknown]
  - Cough [Not Recovered/Not Resolved]
  - Laryngitis [Not Recovered/Not Resolved]
  - Viral infection [Recovered/Resolved]
  - Vomiting [Recovered/Resolved]
  - Headache [Recovered/Resolved]
